FAERS Safety Report 21358405 (Version 2)
Quarter: 2022Q4

REPORT INFORMATION
  Report Type: Report from Study
  Country: IT (occurrence: IT)
  Receive Date: 20220921
  Receipt Date: 20221125
  Transmission Date: 20230113
  Serious: Yes (Other)
  Sender: FDA-Public Use
  Company Number: IT-UCBSA-2022055084

PATIENT
  Age: 69 Year
  Sex: Female

DRUGS (1)
  1. LEVETIRACETAM [Suspect]
     Active Substance: LEVETIRACETAM
     Indication: Product used for unknown indication
     Dosage: 100MG/ML

REACTIONS (6)
  - Respiratory failure [Unknown]
  - Breast neoplasm [Unknown]
  - Dysphagia [Unknown]
  - Illness [Recovering/Resolving]
  - Haematuria [Recovering/Resolving]
  - Wrong technique in product usage process [Unknown]

NARRATIVE: CASE EVENT DATE: 20220101
